FAERS Safety Report 5673297-8 (Version None)
Quarter: 2008Q1

REPORT INFORMATION
  Report Type: 
  Country: None (occurrence: None)
  Receive Date: 20080319
  Receipt Date: 20080306
  Transmission Date: 20080703
  Serious: Yes (Other)
  Sender: FDA-Public Use
  Company Number: US-ELI_LILLY_AND_COMPANY-US200801001643

PATIENT
  Sex: Female

DRUGS (3)
  1. FORTEO [Suspect]
     Indication: OSTEOPOROSIS
     Dosage: UNK, UNK
     Dates: start: 20061101
  2. NALTREXONE HYDROCHLORIDE [Concomitant]
     Indication: MULTIPLE SCLEROSIS
  3. PREVACID [Concomitant]

REACTIONS (5)
  - ADHESION [None]
  - CHOLECYSTITIS INFECTIVE [None]
  - HERPES ZOSTER [None]
  - MALAISE [None]
  - NAUSEA [None]
